FAERS Safety Report 11044717 (Version 1)
Quarter: 2020Q3

REPORT INFORMATION
  Report Type: Report from Study
  Country: DE (occurrence: DE)
  Receive Date: 20150417
  Receipt Date: 20150417
  Transmission Date: 20201105
  Serious: Yes (Life-Threatening, Hospitalization)
  Sender: FDA-Public Use
  Company Number: DE-JNJFOC-20150309963

PATIENT
  Age: 65 Year
  Sex: Male

DRUGS (9)
  1. IBRUTINIB [Suspect]
     Active Substance: IBRUTINIB
     Indication: MANTLE CELL LYMPHOMA
     Dosage: MEDICATION KIT NUMBERS: 13118, 13318MOST RECENT DOSE 23?MAR?2015
     Route: 048
     Dates: start: 20130805
  2. BISOPROLOL [Concomitant]
     Active Substance: BISOPROLOL
     Route: 048
  3. METFORMIN [Concomitant]
     Active Substance: METFORMIN HYDROCHLORIDE
     Indication: DIABETES MELLITUS
     Route: 048
     Dates: start: 20150115
  4. MELPERONE [Concomitant]
     Active Substance: MELPERONE
     Indication: AGITATION
     Route: 048
  5. GLIMEPIRIDE. [Concomitant]
     Active Substance: GLIMEPIRIDE
     Indication: DIABETES MELLITUS
     Route: 048
     Dates: start: 20150115
  6. TRIMETHOPRIM/SULFAMETHOXAZOLE [Concomitant]
     Active Substance: SULFAMETHOXAZOLE\TRIMETHOPRIM
     Indication: INFECTION PROPHYLAXIS
     Route: 048
     Dates: start: 20150114
  7. IBRUTINIB [Suspect]
     Active Substance: IBRUTINIB
     Route: 048
  8. PANTOPRAZOLE [Concomitant]
     Active Substance: PANTOPRAZOLE
     Indication: GASTROINTESTINAL DISORDER THERAPY
     Route: 048
     Dates: start: 20150106
  9. LORAZEPAM. [Concomitant]
     Active Substance: LORAZEPAM
     Indication: AGITATION
     Route: 048
     Dates: start: 201403

REACTIONS (2)
  - Urinary tract infection [Not Recovered/Not Resolved]
  - Cystitis haemorrhagic [Recovered/Resolved]

NARRATIVE: CASE EVENT DATE: 20150311
